APPROVED DRUG PRODUCT: CIMETIDINE
Active Ingredient: CIMETIDINE
Strength: 200MG
Dosage Form/Route: TABLET;ORAL
Application: A074100 | Product #001
Applicant: CHARTWELL RX SCIENCES LLC
Approved: Jan 31, 1995 | RLD: No | RS: No | Type: DISCN